FAERS Safety Report 24092024 (Version 1)
Quarter: 2024Q3

REPORT INFORMATION
  Report Type: Spontaneous
  Country: GB (occurrence: GB)
  Receive Date: 20240715
  Receipt Date: 20240715
  Transmission Date: 20241017
  Serious: Yes (Death, Hospitalization, Other)
  Sender: PFIZER
  Company Number: GB-PFIZER INC-202400210293

PATIENT
  Age: 51 Year
  Sex: Female

DRUGS (9)
  1. VORICONAZOLE [Suspect]
     Active Substance: VORICONAZOLE
     Indication: Pneumonia fungal
     Dosage: 200 MG, 2X/DAY
  2. AMBISOME [Suspect]
     Active Substance: AMPHOTERICIN B
     Indication: Pneumonia fungal
     Dosage: 3 MG/KG, ONCE DAILY, ON DAY 34
     Route: 042
  3. CASPOFUNGIN [Suspect]
     Active Substance: CASPOFUNGIN
     Indication: Fungal infection
     Dosage: 70 MG, 1X/DAY
     Route: 042
  4. CASPOFUNGIN [Suspect]
     Active Substance: CASPOFUNGIN
     Dosage: UNK
  5. CYTARABINE [Concomitant]
     Active Substance: CYTARABINE
     Indication: Acute myeloid leukaemia
     Dosage: UNK, CYCLIC (FIRST CYCLE)
     Dates: start: 202310
  6. MEROPENEM [Concomitant]
     Active Substance: MEROPENEM
     Indication: Enterobacter infection
     Dosage: 1 G, 3X/DAY
  7. MEROPENEM [Concomitant]
     Active Substance: MEROPENEM
     Indication: Enterobacter bacteraemia
  8. IDARUBICIN [Concomitant]
     Active Substance: IDARUBICIN
     Indication: Acute myeloid leukaemia
     Dosage: UNK, CYCLIC (FIRST CYCLE)
     Dates: start: 202310
  9. FLUDARABINE [Concomitant]
     Active Substance: FLUDARABINE PHOSPHATE
     Indication: Acute myeloid leukaemia
     Dosage: UNK, CYCLIC (FIRST CYCLE)
     Dates: start: 202310

REACTIONS (4)
  - Drug ineffective for unapproved indication [Fatal]
  - Mediastinitis [Fatal]
  - Tracheal disorder [Fatal]
  - Off label use [Unknown]
